FAERS Safety Report 14204412 (Version 1)
Quarter: 2017Q4

REPORT INFORMATION
  Report Type: Spontaneous
  Country: US (occurrence: None)
  Receive Date: 20171119
  Receipt Date: 20171119
  Transmission Date: 20180321
  Serious: Yes (Other)
  Sender: FDA-Public Use
  Company Number: None

PATIENT
  Age: 69 Year
  Sex: Female

DRUGS (1)
  1. METOCLOPRAMIDE 10MG [Suspect]
     Active Substance: METOCLOPRAMIDE
     Indication: DYSPEPSIA
     Dosage: ONLY THE FIRST DOSE OF 10MG
     Route: 048

REACTIONS (3)
  - Seizure [None]
  - Psychotic disorder [None]
  - Hallucination [None]

NARRATIVE: CASE EVENT DATE: 20171118
